FAERS Safety Report 9518387 (Version 1)
Quarter: 2013Q3

REPORT INFORMATION
  Report Type: Spontaneous
  Country: VE (occurrence: VE)
  Receive Date: 20130912
  Receipt Date: 20130912
  Transmission Date: 20140515
  Serious: Yes (Other)
  Sender: FDA-Public Use
  Company Number: VE-JNJFOC-20130905252

PATIENT
  Sex: Male

DRUGS (1)
  1. XARELTO [Suspect]
     Indication: ANKLE FRACTURE
     Route: 048

REACTIONS (3)
  - Thrombosis [Unknown]
  - Off label use [Unknown]
  - Drug ineffective [Unknown]
